FAERS Safety Report 19258872 (Version 1)
Quarter: 2021Q2

REPORT INFORMATION
  Report Type: Spontaneous
  Country: US (occurrence: US)
  Receive Date: 20210514
  Receipt Date: 20210514
  Transmission Date: 20210717
  Serious: Yes (Hospitalization, Other)
  Sender: FDA-Public Use
  Company Number: US-PFIZER INC-2021483840

PATIENT
  Age: 28 Year
  Sex: Female
  Weight: 47.63 kg

DRUGS (2)
  1. OMEPRAZOLE. [Concomitant]
     Active Substance: OMEPRAZOLE
  2. METHOTREXATE SODIUM. [Suspect]
     Active Substance: METHOTREXATE SODIUM
     Indication: ABORTION
     Dosage: UNK
     Route: 030
     Dates: start: 20210126

REACTIONS (5)
  - Abdominal pain [Unknown]
  - Internal haemorrhage [Unknown]
  - Drug ineffective for unapproved indication [Unknown]
  - Vaginal discharge [Unknown]
  - Off label use [Unknown]

NARRATIVE: CASE EVENT DATE: 20210126
